FAERS Safety Report 21527013 (Version 2)
Quarter: 2022Q4

REPORT INFORMATION
  Report Type: Other
  Country: KZ (occurrence: KZ)
  Receive Date: 20221031
  Receipt Date: 20221206
  Transmission Date: 20230112
  Serious: Yes (Other)
  Sender: FDA-Public Use
  Company Number: KZ-MACLEODS PHARMA EU LTD-MAC2022038058

PATIENT

DRUGS (8)
  1. PYRAZINAMIDE [Suspect]
     Active Substance: PYRAZINAMIDE
     Indication: Pulmonary tuberculosis
     Dosage: 1500 MILLIGRAM
     Route: 065
     Dates: start: 20220711
  2. Levozin 500 [Concomitant]
     Indication: Product used for unknown indication
     Dosage: UNK, 500 MILLIGRAM ( NOBEL ALMATY PHARMACEUTICAL FACTORY; KAZAKHSTAN)
     Route: 065
     Dates: start: 20220711
  3. SIRTURO [Concomitant]
     Active Substance: BEDAQUILINE FUMARATE
     Indication: Product used for unknown indication
     Dosage: 4 DOSAGE FORM, QD, 400 MILLIGRAM
     Route: 065
     Dates: start: 20220711
  4. SIRTURO [Concomitant]
     Active Substance: BEDAQUILINE FUMARATE
     Dosage: 200 MILLIGRAM, T.I.W.
     Route: 065
  5. Cycloserine 750 [Concomitant]
     Indication: Product used for unknown indication
     Dosage: UNK ( ABDI IBRAHIM GLOBAL PHARM; KAZAKHSTAN)
     Route: 065
     Dates: start: 20220711
  6. Amizolide [Concomitant]
     Indication: Product used for unknown indication
     Dosage: UNK (ABDI IBRAHIM GLOBAL PHARM; RUSSIA)
     Route: 065
     Dates: start: 20220711
  7. LEVOFLOXACIN [Concomitant]
     Active Substance: LEVOFLOXACIN
     Indication: Product used for unknown indication
     Dosage: 1000 MILLIGRAM
     Route: 065
     Dates: start: 20220711
  8. LINEZOLID [Concomitant]
     Active Substance: LINEZOLID
     Indication: Product used for unknown indication
     Dosage: 600 MILLIGRAM
     Route: 065
     Dates: start: 20220711

REACTIONS (3)
  - Hepatitis toxic [Recovering/Resolving]
  - Blood bilirubin increased [Recovering/Resolving]
  - Bilirubin conjugated increased [Recovering/Resolving]
